FAERS Safety Report 9786647 (Version 3)
Quarter: 2014Q1

REPORT INFORMATION
  Report Type: Report from Study
  Country: US (occurrence: US)
  Receive Date: 20131227
  Receipt Date: 20140208
  Transmission Date: 20141002
  Serious: Yes (Hospitalization)
  Sender: FDA-Public Use
  Company Number: US-IPSEN BIOPHARMACEUTICALS, INC.-2013-3273

PATIENT
  Age: 62 Year
  Sex: Male
  Weight: 125 kg

DRUGS (6)
  1. SOMATULINE DEPOT INJECTION (120MG) [Suspect]
     Indication: ACROMEGALY
     Route: 058
     Dates: start: 201106
  2. ASPIRIN [Concomitant]
     Indication: ANTICOAGULANT THERAPY
     Dosage: NOT REPORTED
     Route: 065
  3. TESTOSTERONE [Concomitant]
     Indication: PRODUCT USED FOR UNKNOWN INDICATION
     Dosage: NOT REPORTED
     Route: 065
  4. COREG [Concomitant]
     Indication: EJECTION FRACTION DECREASED
     Dosage: NOT REPORTED
     Route: 065
  5. HYDRALAZINE [Concomitant]
     Indication: EJECTION FRACTION DECREASED
     Dosage: NOT REPORTED
     Route: 065
  6. CELEBREX [Concomitant]
     Indication: ANTICOAGULANT THERAPY
     Dosage: NOT REPORTED
     Route: 065

REACTIONS (6)
  - Shoulder arthroplasty [Unknown]
  - Injection site haemorrhage [Not Recovered/Not Resolved]
  - Chest discomfort [Not Recovered/Not Resolved]
  - Injection site scar [Not Recovered/Not Resolved]
  - Diarrhoea [Unknown]
  - Heart rate decreased [Unknown]
